FAERS Safety Report 12786314 (Version 1)
Quarter: 2016Q3

REPORT INFORMATION
  Report Type: Spontaneous
  Country: US (occurrence: US)
  Receive Date: 20160927
  Receipt Date: 20160927
  Transmission Date: 20161109
  Serious: No
  Sender: FDA-Public Use
  Company Number: US-FRI-1000086345

PATIENT

DRUGS (1)
  1. LINZESS [Suspect]
     Active Substance: LINACLOTIDE
     Indication: IRRITABLE BOWEL SYNDROME
     Dosage: UNK
     Dates: start: 2016, end: 2016

REACTIONS (11)
  - Dysstasia [Unknown]
  - Anxiety [Unknown]
  - Feeling hot [Unknown]
  - Nervousness [Unknown]
  - Peripheral motor neuropathy [Unknown]
  - Unevaluable event [Unknown]
  - Feeling cold [Unknown]
  - Drug ineffective [Recovered/Resolved]
  - Tremor [Unknown]
  - Unevaluable event [Unknown]
  - Weight decreased [Unknown]

NARRATIVE: CASE EVENT DATE: 2016
